FAERS Safety Report 15958353 (Version 1)
Quarter: 2019Q1

REPORT INFORMATION
  Report Type: Spontaneous
  Country: US (occurrence: US)
  Receive Date: 20190213
  Receipt Date: 20190213
  Transmission Date: 20190417
  Serious: Yes (Hospitalization)
  Sender: FDA-Public Use
  Company Number: US-MYLANLABS-2019M1012600

PATIENT
  Sex: Male

DRUGS (3)
  1. ITRACONAZOLE CAPSULES [Suspect]
     Active Substance: ITRACONAZOLE
     Indication: PROPHYLAXIS
     Dosage: 100 MILLIGRAM, BID
  2. TACROLIMUS. [Concomitant]
     Active Substance: TACROLIMUS
  3. ITRACONAZOLE CAPSULES [Suspect]
     Active Substance: ITRACONAZOLE
     Dosage: UNK
     Dates: start: 2015

REACTIONS (3)
  - Drug ineffective [Unknown]
  - Scedosporium infection [Unknown]
  - Product substitution issue [Unknown]
